FAERS Safety Report 16800488 (Version 1)
Quarter: 2019Q3

REPORT INFORMATION
  Report Type: Report from Study
  Country: GB (occurrence: GB)
  Receive Date: 20190912
  Receipt Date: 20190912
  Transmission Date: 20191005
  Serious: Yes (Hospitalization)
  Sender: FDA-Public Use
  Company Number: GB-PFIZER INC-2019386593

PATIENT
  Age: 85 Year
  Sex: Female

DRUGS (1)
  1. SUNITINIB MALATE. [Suspect]
     Active Substance: SUNITINIB MALATE
     Dosage: 2 MG, 2X/DAY
     Route: 048
     Dates: start: 20190903

REACTIONS (2)
  - Pulmonary oedema [Unknown]
  - Pyrexia [Unknown]

NARRATIVE: CASE EVENT DATE: 20190904
